FAERS Safety Report 9980921 (Version 1)
Quarter: 2014Q1

REPORT INFORMATION
  Report Type: Spontaneous
  Country: US (occurrence: US)
  Receive Date: 20140307
  Receipt Date: 20140307
  Transmission Date: 20141002
  Serious: No
  Sender: FDA-Public Use
  Company Number: US-GLAXOSMITHKLINE-A1029821A

PATIENT
  Age: 59 Year
  Sex: Female

DRUGS (4)
  1. REQUIP [Suspect]
     Indication: RESTLESS LEGS SYNDROME
     Route: 048
     Dates: start: 200601, end: 2006
  2. REQUIP XL [Suspect]
     Indication: RESTLESS LEGS SYNDROME
     Dosage: 4MG TWICE PER DAY
     Route: 048
     Dates: start: 2006
  3. GABAPENTIN [Concomitant]
  4. CYMBALTA [Concomitant]

REACTIONS (6)
  - Overdose [Unknown]
  - Off label use [Unknown]
  - Drug ineffective [Unknown]
  - Fall [Unknown]
  - Fatigue [Unknown]
  - Arthritis [Unknown]
